FAERS Safety Report 5191517-3 (Version None)
Quarter: 2006Q4

REPORT INFORMATION
  Report Type: 
  Country: None (occurrence: None)
  Receive Date: 20061219
  Receipt Date: 20061219
  Transmission Date: 20070319
  Serious: Yes (Hospitalization)
  Sender: FDA-Public Use
  Company Number: None

PATIENT
  Sex: Female
  Weight: 60 kg

DRUGS (11)
  1. CISPLATIN [Suspect]
     Dosage: 85 MG
  2. GEMCITABINE HCL [Suspect]
     Dosage: 1690 MG
  3. ATIVAN [Concomitant]
  4. COLACE [Concomitant]
  5. COMPAZINE [Concomitant]
  6. DECADRON [Concomitant]
  7. LACTULOSE [Concomitant]
  8. LOVENOX [Concomitant]
  9. OXYCODONE HCL [Concomitant]
  10. ZELNORM [Concomitant]
  11. FENTANYL TRANSDERMAL SYSTEM [Concomitant]

REACTIONS (14)
  - ABDOMINAL PAIN [None]
  - ANAEMIA [None]
  - APHASIA [None]
  - BACK PAIN [None]
  - BLOOD CULTURE POSITIVE [None]
  - CEREBRAL INFARCTION [None]
  - CERVIX CARCINOMA RECURRENT [None]
  - COUGH [None]
  - EFFUSION [None]
  - GASTROINTESTINAL HAEMORRHAGE [None]
  - HAEMOPTYSIS [None]
  - METASTASIS [None]
  - MOTOR DYSFUNCTION [None]
  - THROMBOCYTOPENIA [None]
